FAERS Safety Report 5496796-0 (Version None)
Quarter: 2007Q4

REPORT INFORMATION
  Report Type: 
  Country: None (occurrence: None)
  Receive Date: 20071025
  Receipt Date: 20070817
  Transmission Date: 20080405
  Serious: No
  Sender: FDA-Public Use
  Company Number: A0671283A

PATIENT
  Age: 51 Year
  Sex: Male

DRUGS (10)
  1. ADVAIR DISKUS 100/50 [Suspect]
     Indication: ASTHMA
     Dosage: 1PUFF TWICE PER DAY
     Route: 055
     Dates: start: 20070713
  2. PREVACID [Concomitant]
  3. CYMBALTA [Concomitant]
  4. SEROQUEL [Concomitant]
  5. TOPROL-XL [Concomitant]
  6. FAMOTIDINE [Concomitant]
  7. TRICOR [Concomitant]
  8. MICARDIS [Concomitant]
  9. NASONEX [Concomitant]
  10. SINGULAIR [Concomitant]

REACTIONS (2)
  - GLOSSODYNIA [None]
  - MOUTH ULCERATION [None]
